FAERS Safety Report 4572084-1 (Version None)
Quarter: 2005Q1

REPORT INFORMATION
  Report Type: 
  Country: None (occurrence: None)
  Receive Date: 20050202
  Receipt Date: 20050111
  Transmission Date: 20050727
  Serious: Yes (Other)
  Sender: FDA-Public Use
  Company Number: USA050188098

PATIENT
  Age: 74 Year
  Sex: Male

DRUGS (4)
  1. ONCOVIN [Suspect]
     Indication: LYMPHOMA
     Dates: start: 20020802, end: 20021116
  2. DOXYCYCLINE [Concomitant]
  3. CYCLOPHOSPHAMIDE [Concomitant]
  4. RITUXAN [Concomitant]

REACTIONS (1)
  - NEUROPATHY PERIPHERAL [None]
